FAERS Safety Report 14411572 (Version 5)
Quarter: 2018Q1

REPORT INFORMATION
  Report Type: Spontaneous
  Country: JP (occurrence: JP)
  Receive Date: 20180119
  Receipt Date: 20180228
  Transmission Date: 20180509
  Serious: Yes (Life-Threatening, Other)
  Sender: FDA-Public Use
  Company Number: JP-GLAXOSMITHKLINE-JP2018JPN007487

PATIENT
  Age: 65 Year
  Sex: Female

DRUGS (7)
  1. RELENZA [Suspect]
     Active Substance: ZANAMIVIR
     Indication: INFLUENZA
     Dosage: 10 MG, BID
     Route: 055
     Dates: start: 20180112, end: 20180115
  2. LIPITOR [Concomitant]
     Active Substance: ATORVASTATIN CALCIUM
     Indication: HYPERLIPIDAEMIA
     Dosage: 10 MG, 1D
  3. CALONAL [Concomitant]
     Active Substance: ACETAMINOPHEN
     Dosage: UNK
  4. HUSTAZOL [Concomitant]
     Active Substance: CLOPERASTINE
     Dosage: UNK
  5. NOVORAPID [Concomitant]
     Active Substance: INSULIN ASPART
     Indication: TYPE 1 DIABETES MELLITUS
     Dosage: UNK UNK, TID
  6. TRESIBA [Concomitant]
     Active Substance: INSULIN DEGLUDEC
     Dosage: UNK UNK, BID
  7. MUCODYNE [Concomitant]
     Active Substance: CARBOCYSTEINE
     Dosage: UNK

REACTIONS (2)
  - Altered state of consciousness [Recovered/Resolved]
  - Road traffic accident [Recovered/Resolved]

NARRATIVE: CASE EVENT DATE: 20180115
